FAERS Safety Report 12946531 (Version 2)
Quarter: 2016Q4

REPORT INFORMATION
  Report Type: Report from Study
  Country: US (occurrence: US)
  Receive Date: 20161116
  Receipt Date: 20161202
  Transmission Date: 20170207
  Serious: Yes (Hospitalization)
  Sender: FDA-Public Use
  Company Number: PHHO2016US002368

PATIENT
  Age: 68 Year
  Sex: Female
  Weight: 73.55 kg

DRUGS (9)
  1. NORCO [Concomitant]
     Active Substance: ACETAMINOPHEN\HYDROCODONE BITARTRATE
     Indication: PRODUCT USED FOR UNKNOWN INDICATION
     Dosage: 2 DF (1 TO 2 TABLETS), Q4H PRN
     Route: 048
  2. AZACITIDINE. [Suspect]
     Active Substance: AZACITIDINE
     Indication: ACUTE MYELOID LEUKAEMIA
     Dosage: 75 MG/M2 (FROM DAY1 TO DAY 7, EACH CYCLE)
     Route: 058
     Dates: start: 20151215
  3. AZACITIDINE. [Suspect]
     Active Substance: AZACITIDINE
     Dosage: 75 MG/M2 (FROM DAY1 TO DAY 7, EACH CYCLE)
     Route: 058
     Dates: start: 20160111
  4. LIDOCAINE. [Concomitant]
     Active Substance: LIDOCAINE
     Indication: PRODUCT USED FOR UNKNOWN INDICATION
     Dosage: 1 DF (APPLICATION), QD
     Route: 061
  5. ODOMZO [Suspect]
     Active Substance: SONIDEGIB
     Indication: ACUTE MYELOID LEUKAEMIA
     Dosage: 200 MG, QD (28 DAY CYCLE)
     Route: 048
     Dates: start: 20151215
  6. ZOFRAN [Concomitant]
     Active Substance: ONDANSETRON HYDROCHLORIDE
     Indication: PRODUCT USED FOR UNKNOWN INDICATION
     Dosage: 8 MG, (4 TO 8MG) Q8H PRN
     Route: 048
  7. DECADRON [Concomitant]
     Active Substance: DEXAMETHASONE
     Indication: PRODUCT USED FOR UNKNOWN INDICATION
     Dosage: 0.5 MG/5ML, UNK
     Route: 065
  8. ODOMZO [Suspect]
     Active Substance: SONIDEGIB
     Dosage: 200 MG, QD (28 DAY CYCLE)
     Route: 048
     Dates: start: 20160111
  9. VALTREX [Concomitant]
     Active Substance: VALACYCLOVIR HYDROCHLORIDE
     Indication: PRODUCT USED FOR UNKNOWN INDICATION
     Dosage: 500 MG, Q12H
     Route: 048

REACTIONS (2)
  - Pyrexia [Unknown]
  - Febrile neutropenia [Recovered/Resolved]

NARRATIVE: CASE EVENT DATE: 20160206
